FAERS Safety Report 24885801 (Version 2)
Quarter: 2025Q1

REPORT INFORMATION
  Report Type: Spontaneous
  Country: JP (occurrence: JP)
  Receive Date: 20250125
  Receipt Date: 20250221
  Transmission Date: 20250409
  Serious: No
  Sender: AMGEN
  Company Number: JP-AMGEN-JPNSP2025012209

PATIENT

DRUGS (1)
  1. EVENITY [Suspect]
     Active Substance: ROMOSOZUMAB-AQQG
     Indication: Osteoporosis
     Route: 058

REACTIONS (2)
  - Injection site pruritus [Unknown]
  - Injection site erythema [Unknown]
